FAERS Safety Report 10414716 (Version 1)
Quarter: 2014Q3

REPORT INFORMATION
  Report Type: Spontaneous
  Country: US (occurrence: None)
  Receive Date: 20140827
  Receipt Date: 20140827
  Transmission Date: 20150326
  Serious: Yes (Death)
  Sender: FDA-Public Use
  Company Number: None

PATIENT
  Age: 72 Year
  Sex: Male

DRUGS (1)
  1. NEULASTA [Suspect]
     Active Substance: PEGFILGRASTIM
     Indication: PLASMA CELL MYELOMA
     Route: 058
     Dates: start: 20140815, end: 20140821

REACTIONS (4)
  - Clostridial infection [None]
  - Dialysis [None]
  - White blood cell count decreased [None]
  - Renal transplant [None]

NARRATIVE: CASE EVENT DATE: 20140821
